FAERS Safety Report 8198320-0 (Version None)
Quarter: 2012Q1

REPORT INFORMATION
  Report Type: 
  Country: None (occurrence: None)
  Receive Date: 20120309
  Receipt Date: 20120225
  Transmission Date: 20120608
  Serious: Yes (Other)
  Sender: FDA-Public Use
  Company Number: PHHY2012AU019866

PATIENT
  Age: 25 Year
  Sex: Female

DRUGS (4)
  1. ASPIRIN [Concomitant]
     Dosage: 100 MG,
  2. ENOXAPARIN [Concomitant]
     Dosage: 40 MG, UNK
  3. CALCIUM [Concomitant]
     Dosage: 600 MG, BID
  4. METYRAPONE [Suspect]
     Indication: CORTISOL FREE URINE INCREASED
     Dosage: UNK UKN, UNK

REACTIONS (4)
  - PLACENTAL INSUFFICIENCY [None]
  - MATERNAL EXPOSURE DURING PREGNANCY [None]
  - FOETAL GROWTH RESTRICTION [None]
  - PREMATURE DELIVERY [None]
